FAERS Safety Report 5116764-8 (Version None)
Quarter: 2006Q3

REPORT INFORMATION
  Report Type: 
  Country: None (occurrence: None)
  Receive Date: 20060928
  Receipt Date: 20060919
  Transmission Date: 20061208
  Serious: Yes (Other)
  Sender: FDA-Public Use
  Company Number: GT-BRISTOL-MYERS SQUIBB COMPANY-13516893

PATIENT
  Age: 4 Year
  Sex: Female

DRUGS (1)
  1. AMIKIN [Suspect]
     Dates: start: 20060904

REACTIONS (1)
  - VASCULITIS [None]
